FAERS Safety Report 18611462 (Version 1)
Quarter: 2020Q4

REPORT INFORMATION
  Report Type: Spontaneous
  Country: US (occurrence: US)
  Receive Date: 20201209
  Receipt Date: 20201209
  Transmission Date: 20210114
  Serious: Yes (Hospitalization)
  Sender: FDA-Public Use
  Company Number: None

PATIENT
  Age: 83 Year
  Sex: Male
  Weight: 99.8 kg

DRUGS (18)
  1. FUROSEMIDE. [Concomitant]
     Active Substance: FUROSEMIDE
     Dates: start: 20201201, end: 20201207
  2. CASIRIVIMAB. [Suspect]
     Active Substance: CASIRIVIMAB
     Indication: COVID-19
     Dosage: ?          OTHER FREQUENCY:ONCE;?
     Route: 042
     Dates: start: 20201205, end: 20201205
  3. APIXABAN [Concomitant]
     Active Substance: APIXABAN
     Dates: start: 20201201, end: 20201207
  4. GABAPENTIN. [Concomitant]
     Active Substance: GABAPENTIN
     Dates: start: 20201201, end: 20201207
  5. ASPIRIN. [Concomitant]
     Active Substance: ASPIRIN
     Dates: start: 20201201, end: 20201205
  6. SODIUM CHLORIDE. [Concomitant]
     Active Substance: SODIUM CHLORIDE
     Dates: start: 20201205, end: 20201205
  7. IOHEXOL [Concomitant]
     Active Substance: IOHEXOL
     Dates: start: 20201205, end: 20201205
  8. PROCHLORPERAZINE. [Concomitant]
     Active Substance: PROCHLORPERAZINE
     Dates: start: 20201206, end: 20201206
  9. MELATONIN [Concomitant]
     Active Substance: MELATONIN
     Dates: start: 20201201, end: 20201207
  10. IMDEVIMAB. [Suspect]
     Active Substance: IMDEVIMAB
     Indication: COVID-19
     Dosage: ?          OTHER FREQUENCY:ONCE;?
     Route: 042
     Dates: start: 20201205, end: 20201205
  11. VITAMIN D [Concomitant]
     Active Substance: VITAMIN D NOS
     Dates: start: 20201206, end: 20201207
  12. DEXAMETHASONE. [Concomitant]
     Active Substance: DEXAMETHASONE
     Dates: start: 20201206, end: 20201207
  13. INSULIN ASPART [Concomitant]
     Active Substance: INSULIN ASPART
     Dates: start: 20201206, end: 20201207
  14. ONDANSETRON [Concomitant]
     Active Substance: ONDANSETRON
     Dates: start: 20201205, end: 20201206
  15. KENALOG CREAM [Concomitant]
     Dates: start: 20201201, end: 20201204
  16. METOPROLOL TARTRATE. [Concomitant]
     Active Substance: METOPROLOL TARTRATE
     Dates: start: 20201201, end: 20201207
  17. ZINC SULFATE. [Concomitant]
     Active Substance: ZINC SULFATE
     Dates: start: 20201206, end: 20201207
  18. ATORVASTATIN [Concomitant]
     Active Substance: ATORVASTATIN
     Dates: start: 20201201, end: 20201205

REACTIONS (7)
  - Drug ineffective [None]
  - Nausea [None]
  - Infusion related reaction [None]
  - Oxygen saturation decreased [None]
  - Chills [None]
  - Vomiting [None]
  - Malaise [None]

NARRATIVE: CASE EVENT DATE: 20201205
